FAERS Safety Report 12703576 (Version 1)
Quarter: 2016Q3

REPORT INFORMATION
  Report Type: Spontaneous
  Country: BR (occurrence: BR)
  Receive Date: 20160831
  Receipt Date: 20160831
  Transmission Date: 20161109
  Serious: Yes (Hospitalization, Other)
  Sender: FDA-Public Use
  Company Number: PHHY2016BR118679

PATIENT
  Age: 29 Year
  Sex: Female

DRUGS (5)
  1. TRILEPTAL [Suspect]
     Active Substance: OXCARBAZEPINE
     Indication: MOOD ALTERED
     Dosage: 2 DF, QD
     Route: 048
     Dates: start: 2015
  2. RIVOTRIL [Suspect]
     Active Substance: CLONAZEPAM
     Indication: PRODUCT USED FOR UNKNOWN INDICATION
     Route: 065
  3. DIAZEPAM. [Concomitant]
     Active Substance: DIAZEPAM
     Indication: PRODUCT USED FOR UNKNOWN INDICATION
     Dosage: UNK
     Route: 065
  4. TRILEPTAL [Suspect]
     Active Substance: OXCARBAZEPINE
     Indication: INSOMNIA
     Dosage: 2 DF, QD
     Route: 048
  5. HALDOL [Concomitant]
     Active Substance: HALOPERIDOL
     Indication: PRODUCT USED FOR UNKNOWN INDICATION
     Dosage: 10 GTT, QD (10 AT BREAKFAST, 10 DROPS AT LUNCH, 10 DROPS AT DINNER)
     Route: 065

REACTIONS (16)
  - Dizziness [Unknown]
  - Erythema [Unknown]
  - Hypercoagulation [Unknown]
  - Incorrect dose administered [Unknown]
  - Sleep disorder [Unknown]
  - Euphoric mood [Unknown]
  - Coma [Recovering/Resolving]
  - Mood altered [Not Recovered/Not Resolved]
  - Pain [Unknown]
  - Peripheral swelling [Unknown]
  - Product use issue [Unknown]
  - Pneumonia [Recovering/Resolving]
  - Drug dependence [Unknown]
  - Thrombosis [Unknown]
  - Vein disorder [Unknown]
  - Somnolence [Unknown]

NARRATIVE: CASE EVENT DATE: 201311
